FAERS Safety Report 21910340 (Version 1)
Quarter: 2023Q1

REPORT INFORMATION
  Report Type: Spontaneous
  Country: US (occurrence: US)
  Receive Date: 20230125
  Receipt Date: 20230125
  Transmission Date: 20230417
  Serious: No
  Sender: FDA-Public Use
  Company Number: US-ALLERGAN-2210804US

PATIENT
  Age: 54 Year
  Sex: Female

DRUGS (10)
  1. BOTOX COSMETIC [Suspect]
     Active Substance: ONABOTULINUMTOXINA
     Indication: Product used for unknown indication
     Dosage: 32 UNITS, SINGLE
     Dates: start: 20220316, end: 20220316
  2. BOTOX COSMETIC [Suspect]
     Active Substance: ONABOTULINUMTOXINA
     Indication: Lip cosmetic procedure
     Dosage: UNK UNK, SINGLE
     Dates: start: 20210509, end: 20210509
  3. BOTOX COSMETIC [Suspect]
     Active Substance: ONABOTULINUMTOXINA
     Indication: Skin wrinkling
     Dosage: UNK UNK, SINGLE
  4. HYALURONIC ACID [Suspect]
     Active Substance: HYALURONIC ACID
     Indication: Product used for unknown indication
     Dosage: UNK
  5. JUVEDERM VOLUMA XC [Suspect]
     Active Substance: HYALURONIC ACID\LIDOCAINE HYDROCHLORIDE
     Indication: Product used for unknown indication
     Dosage: 4 SYRINGES
     Dates: start: 20210513, end: 20210513
  6. JUVEDERM VOLUMA XC [Suspect]
     Active Substance: HYALURONIC ACID\LIDOCAINE HYDROCHLORIDE
     Dosage: 2 INJECTIONS
     Dates: start: 202104, end: 202104
  7. HYALURONIC ACID\LIDOCAINE HYDROCHLORIDE [Suspect]
     Active Substance: HYALURONIC ACID\LIDOCAINE HYDROCHLORIDE
     Indication: Product used for unknown indication
     Dosage: 1 SYRINGE
     Dates: start: 20210513, end: 20210513
  8. JUVEDERM [Suspect]
     Active Substance: HYALURONIC ACID
     Indication: Product used for unknown indication
     Dosage: 1 SYRINGE
     Dates: start: 20210513, end: 20210513
  9. JUVEDERM ULTRA [Suspect]
     Active Substance: HYALURONIC ACID
     Indication: Product used for unknown indication
     Dosage: 2 SYRINGES
     Dates: start: 20210513, end: 20210513
  10. JUVEDERM ULTRA [Suspect]
     Active Substance: HYALURONIC ACID
     Indication: Product used for unknown indication
     Dosage: 1 SYRINGE
     Dates: start: 20210513, end: 20210513

REACTIONS (11)
  - Facial asymmetry [Not Recovered/Not Resolved]
  - Lip disorder [Not Recovered/Not Resolved]
  - Oral disorder [Unknown]
  - Off label use [Unknown]
  - Rash [Recovered/Resolved]
  - Contusion [Recovered/Resolved]
  - Facial pain [Not Recovered/Not Resolved]
  - Contusion [Not Recovered/Not Resolved]
  - Swelling face [Unknown]
  - Facial paresis [Unknown]
  - Drug ineffective for unapproved indication [Unknown]

NARRATIVE: CASE EVENT DATE: 20210501
